FAERS Safety Report 4630971-X (Version None)
Quarter: 2005Q2

REPORT INFORMATION
  Report Type: 
  Country: None (occurrence: None)
  Receive Date: 20050406
  Receipt Date: 20050406
  Transmission Date: 20051028
  Serious: Yes (Hospitalization)
  Sender: FDA-Public Use
  Company Number: None

PATIENT
  Age: 60 Year
  Sex: Male

DRUGS (9)
  1. PARAPLATIN [Suspect]
     Indication: SMALL CELL LUNG CANCER STAGE UNSPECIFIED
     Dosage: 400 MG EVERY 3 WEEKS INTRAVENOUS
     Route: 042
     Dates: start: 20050105, end: 20050105
  2. LOVENOX [Concomitant]
  3. RISPERDAL [Concomitant]
  4. METOPROLOL TARTRATE [Concomitant]
  5. LAMICTAL [Concomitant]
  6. PREVACID [Concomitant]
  7. ZOCOR [Concomitant]
  8. COMBIVENT [Concomitant]
  9. MAGNESIUM OXIDE [Concomitant]

REACTIONS (3)
  - ASTHENIA [None]
  - FATIGUE [None]
  - PANCYTOPENIA [None]
